FAERS Safety Report 10758058 (Version 4)
Quarter: 2015Q1

REPORT INFORMATION
  Report Type: Spontaneous
  Country: IL (occurrence: IL)
  Receive Date: 20150203
  Receipt Date: 20150317
  Transmission Date: 20150721
  Serious: Yes (Hospitalization, Other)
  Sender: FDA-Public Use
  Company Number: IL-JNJFOC-20150107457

PATIENT
  Sex: Male

DRUGS (1)
  1. IMBRUVICA [Suspect]
     Active Substance: IBRUTINIB
     Indication: MANTLE CELL LYMPHOMA
     Route: 048

REACTIONS (5)
  - Tumour flare [Unknown]
  - Pleural effusion [Unknown]
  - Pulmonary oedema [Unknown]
  - Colon cancer metastatic [Unknown]
  - Adenocarcinoma [Unknown]
